FAERS Safety Report 16872747 (Version 1)
Quarter: 2019Q4

REPORT INFORMATION
  Report Type: Spontaneous
  Country: CN (occurrence: CN)
  Receive Date: 20191001
  Receipt Date: 20191001
  Transmission Date: 20200122
  Serious: Yes (Other)
  Sender: FDA-Public Use
  Company Number: CN-PFIZER INC-2019420259

PATIENT
  Age: 57 Year
  Sex: Female
  Weight: 62 kg

DRUGS (6)
  1. CORDARONE [Suspect]
     Active Substance: AMIODARONE HYDROCHLORIDE
     Indication: ARRHYTHMIA
     Dosage: 0.2 MG, 1X/DAY
     Route: 048
     Dates: start: 20190902, end: 20190909
  2. WARFARIN SODIUM. [Suspect]
     Active Substance: WARFARIN SODIUM
     Indication: ANTICOAGULANT THERAPY
     Dosage: 1.875 MG, 1X/DAY
     Route: 048
     Dates: start: 20190816, end: 20190909
  3. TORASEMIDE [Suspect]
     Active Substance: TORSEMIDE
     Indication: POLYURIA
     Dosage: 10 MG, 2X/DAY
     Route: 041
     Dates: start: 20190831, end: 20190907
  4. CEFUROXIME SODIUM. [Suspect]
     Active Substance: CEFUROXIME SODIUM
     Indication: ANTI-INFECTIVE THERAPY
     Dosage: 1.5 MG, 2X/DAY
     Route: 041
     Dates: start: 20190831, end: 20190906
  5. SPIRONOLACTONE. [Suspect]
     Active Substance: SPIRONOLACTONE
     Indication: POLYURIA
     Dosage: 20 MG, 2X/DAY
     Route: 048
     Dates: start: 20190831, end: 20190915
  6. HYDROCHLOROTHIAZIDE. [Suspect]
     Active Substance: HYDROCHLOROTHIAZIDE
     Indication: POLYURIA
     Dosage: 25 MG, 2X/DAY
     Route: 048
     Dates: start: 20190831, end: 20190915

REACTIONS (5)
  - International normalised ratio increased [Recovering/Resolving]
  - Blood sodium decreased [Recovering/Resolving]
  - Blood chloride decreased [Recovering/Resolving]
  - Prothrombin time prolonged [Recovering/Resolving]
  - Prothrombin level decreased [Recovering/Resolving]

NARRATIVE: CASE EVENT DATE: 20190906
